FAERS Safety Report 15595486 (Version 4)
Quarter: 2019Q3

REPORT INFORMATION
  Report Type: Report from Study
  Country: US (occurrence: US)
  Receive Date: 20181107
  Receipt Date: 20190826
  Transmission Date: 20191004
  Serious: No
  Sender: FDA-Public Use
  Company Number: PHEH2018US046153

PATIENT
  Age: 54 Year
  Sex: Female

DRUGS (2)
  1. COSENTYX [Suspect]
     Active Substance: SECUKINUMAB
     Indication: PSORIASIS
     Dosage: 300 MG, QW
     Route: 058
     Dates: start: 20181009
  2. COSENTYX [Suspect]
     Active Substance: SECUKINUMAB
     Dosage: 300 MG, Q4W
     Route: 058

REACTIONS (11)
  - Cough [Unknown]
  - Psoriasis [Unknown]
  - Limb injury [Unknown]
  - Macule [Unknown]
  - Sinusitis [Unknown]
  - Malaise [Unknown]
  - Rhinorrhoea [Unknown]
  - Pyrexia [Unknown]
  - Stress [Unknown]
  - Hypersensitivity [Unknown]
  - Hyperlipidaemia [Unknown]

NARRATIVE: CASE EVENT DATE: 20190817
